FAERS Safety Report 4922120-5 (Version None)
Quarter: 2006Q1

REPORT INFORMATION
  Report Type: 
  Country: None (occurrence: None)
  Receive Date: 20060222
  Receipt Date: 20060222
  Transmission Date: 20060701
  Serious: Yes (Other)
  Sender: FDA-Public Use
  Company Number: None

PATIENT
  Age: 19 Year
  Sex: Female

DRUGS (4)
  1. TORADOL [Suspect]
     Indication: PAIN
     Dosage: 30 MG IM  1 DOSE
     Route: 030
     Dates: start: 20060216
  2. DEMEROL [Concomitant]
  3. VERSED [Concomitant]
  4. FENTANYL CITRATE [Concomitant]

REACTIONS (3)
  - INJECTION SITE MASS [None]
  - INJECTION SITE RASH [None]
  - INJECTION SITE WARMTH [None]
